FAERS Safety Report 17310058 (Version 1)
Quarter: 2020Q1

REPORT INFORMATION
  Report Type: Spontaneous
  Country: US (occurrence: US)
  Receive Date: 20200123
  Receipt Date: 20200123
  Transmission Date: 20200409
  Serious: No
  Sender: FDA-Public Use
  Company Number: US-ROCHE-2271244

PATIENT

DRUGS (6)
  1. XELJANZ XR [Concomitant]
     Active Substance: TOFACITINIB CITRATE
     Route: 048
  2. RITUXAN [Suspect]
     Active Substance: RITUXIMAB
     Indication: PRODUCT USED FOR UNKNOWN INDICATION
     Route: 065
     Dates: start: 201402, end: 201406
  3. ENBREL [Concomitant]
     Active Substance: ETANERCEPT
     Route: 065
     Dates: start: 201406, end: 201712
  4. METHOTREXATE. [Concomitant]
     Active Substance: METHOTREXATE
     Route: 065
     Dates: start: 201005, end: 201712
  5. ORENCIA [Concomitant]
     Active Substance: ABATACEPT
     Route: 065
     Dates: start: 201202, end: 201405
  6. SULFASALAZINE. [Concomitant]
     Active Substance: SULFASALAZINE
     Route: 065
     Dates: start: 201311, end: 201405

REACTIONS (1)
  - Treatment failure [Unknown]
